FAERS Safety Report 7534387-8 (Version None)
Quarter: 2011Q2

REPORT INFORMATION
  Report Type: 
  Country: None (occurrence: None)
  Receive Date: 20110608
  Receipt Date: 20110518
  Transmission Date: 20111010
  Serious: No
  Sender: FDA-Public Use
  Company Number: US-AMGEN-USASP2011025745

PATIENT
  Sex: Female

DRUGS (6)
  1. PROLIA [Suspect]
     Indication: OSTEOPOROSIS POSTMENOPAUSAL
     Dosage: 60 MG, Q6MO
     Dates: start: 20101221
  2. SIMVASTATIN [Concomitant]
     Dosage: 1 MG, QD
  3. VITAMIN A [Concomitant]
  4. BETA                               /00008501/ [Concomitant]
     Dosage: 1 MG, QD
  5. ASPIRIN [Concomitant]
     Dosage: 1 MG, QD
  6. CALCIUM CARBONATE [Concomitant]
     Dosage: 2 MG, QD

REACTIONS (2)
  - TOOTH DISORDER [None]
  - TOOTHACHE [None]
